FAERS Safety Report 19399749 (Version 1)
Quarter: 2021Q2

REPORT INFORMATION
  Report Type: Report from Study
  Country: ZA (occurrence: ZA)
  Receive Date: 20210610
  Receipt Date: 20210610
  Transmission Date: 20210717
  Serious: Yes (Death, Hospitalization, Other)
  Sender: FDA-Public Use
  Company Number: ZA-AMGEN LTD-ZAFSL2021088432

PATIENT
  Age: 80 Year
  Sex: Female

DRUGS (1)
  1. ARANESP [Suspect]
     Active Substance: DARBEPOETIN ALFA
     Indication: CHRONIC KIDNEY DISEASE
     Dosage: 100 MICROGRAM, QWK
     Route: 058
     Dates: start: 20180401, end: 20210604

REACTIONS (2)
  - Cardiac arrest [Fatal]
  - Surgery [Unknown]

NARRATIVE: CASE EVENT DATE: 20210604
